FAERS Safety Report 6017944-X (Version None)
Quarter: 2008Q4

REPORT INFORMATION
  Report Type: 
  Country: None (occurrence: None)
  Receive Date: 20081223
  Receipt Date: 20081218
  Transmission Date: 20090506
  Serious: Yes (Death, Hospitalization)
  Sender: FDA-Public Use
  Company Number: US-JNJFOC-20081205279

PATIENT
  Age: 46 Year
  Sex: Female

DRUGS (6)
  1. CYCLOBENZAPRINE HCL [Suspect]
     Indication: SUICIDE ATTEMPT
     Route: 048
  2. PREGABALIN [Suspect]
     Indication: SUICIDE ATTEMPT
     Route: 048
  3. SERTRALINE [Suspect]
     Indication: SUICIDE ATTEMPT
     Route: 048
  4. PROMETHAZINE [Suspect]
     Indication: SUICIDE ATTEMPT
     Route: 048
  5. TRAMADOL [Suspect]
     Indication: SUICIDE ATTEMPT
     Route: 048
  6. IMIPRAMINE [Suspect]
     Indication: SUICIDE ATTEMPT
     Route: 048

REACTIONS (1)
  - DRUG TOXICITY [None]
